FAERS Safety Report 20015660 (Version 1)
Quarter: 2021Q4

REPORT INFORMATION
  Report Type: Spontaneous
  Country: US (occurrence: None)
  Receive Date: 20211101
  Receipt Date: 20211101
  Transmission Date: 20220303
  Serious: Yes (Life-Threatening, Hospitalization)
  Sender: FDA-Public Use
  Company Number: None

PATIENT
  Age: 35 Year
  Sex: Female
  Weight: 74.25 kg

DRUGS (1)
  1. XYWAV [Suspect]
     Active Substance: CALCIUM OXYBATE\MAGNESIUM OXYBATE\POTASSIUM OXYBATE\SODIUM OXYBATE
     Indication: Narcolepsy
     Dates: start: 20210709, end: 20210724

REACTIONS (10)
  - Speech disorder [None]
  - Tachyphrenia [None]
  - Insomnia [None]
  - Vomiting [None]
  - Diarrhoea [None]
  - Malaise [None]
  - Amnesia [None]
  - Bipolar disorder [None]
  - Drug interaction [None]
  - Hallucination [None]

NARRATIVE: CASE EVENT DATE: 20210723
